FAERS Safety Report 15016920 (Version 1)
Quarter: 2018Q2

REPORT INFORMATION
  Report Type: Spontaneous
  Country: US (occurrence: US)
  Receive Date: 20180615
  Receipt Date: 20180615
  Transmission Date: 20180711
  Serious: Yes (Other)
  Sender: FDA-Public Use
  Company Number: US-PFIZER INC-2018241227

PATIENT
  Sex: Female

DRUGS (5)
  1. GABAPENTIN. [Suspect]
     Active Substance: GABAPENTIN
     Indication: SCIATIC NERVE INJURY
  2. GABAPENTIN. [Suspect]
     Active Substance: GABAPENTIN
     Indication: BACK PAIN
     Dosage: 600 MG, 2X/DAY
  3. GABAPENTIN. [Suspect]
     Active Substance: GABAPENTIN
     Indication: DEPRESSION
  4. GABAPENTIN. [Suspect]
     Active Substance: GABAPENTIN
     Indication: NEURALGIA
  5. GABAPENTIN. [Suspect]
     Active Substance: GABAPENTIN
     Indication: ANXIETY

REACTIONS (7)
  - Malaise [Unknown]
  - Withdrawal syndrome [Unknown]
  - Influenza like illness [Unknown]
  - Product use in unapproved indication [Unknown]
  - Mental impairment [Unknown]
  - Disturbance in attention [Unknown]
  - Nervousness [Unknown]
